FAERS Safety Report 10201833 (Version 2)
Quarter: 2014Q2

REPORT INFORMATION
  Report Type: Spontaneous
  Country: US (occurrence: US)
  Receive Date: 20140528
  Receipt Date: 20140528
  Transmission Date: 20141212
  Serious: No
  Sender: FDA-Public Use
  Company Number: US-BRISTOL-MYERS SQUIBB COMPANY-19223692

PATIENT
  Sex: Male

DRUGS (6)
  1. GLUCOPHAGE [Suspect]
  2. NEXIUM [Suspect]
     Indication: BARRETT^S OESOPHAGUS
  3. ASPIRIN [Concomitant]
  4. TRAMADOL [Concomitant]
  5. VITAMIN B COMPLEX [Concomitant]
  6. L-LYSINE [Concomitant]

REACTIONS (2)
  - Nausea [Not Recovered/Not Resolved]
  - Product taste abnormal [Unknown]
